FAERS Safety Report 9796404 (Version 1)
Quarter: 2014Q1

REPORT INFORMATION
  Report Type: Spontaneous
  Country: US (occurrence: US)
  Receive Date: 20140103
  Receipt Date: 20140103
  Transmission Date: 20141002
  Serious: Yes (Death)
  Sender: FDA-Public Use
  Company Number: US-BRISTOL-MYERS SQUIBB COMPANY-19951813

PATIENT
  Sex: Male

DRUGS (3)
  1. BYETTA [Suspect]
     Dates: start: 2008, end: 2010
  2. JANUVIA [Suspect]
     Dates: start: 2007, end: 2008
  3. VICTOZA [Suspect]
     Dates: start: 2010, end: 201212

REACTIONS (1)
  - Pancreatic carcinoma [Fatal]
